FAERS Safety Report 4903383-9 (Version None)
Quarter: 2006Q1

REPORT INFORMATION
  Report Type: 
  Country: None (occurrence: None)
  Receive Date: 20060203
  Receipt Date: 20060127
  Transmission Date: 20060701
  Serious: Yes (Hospitalization)
  Sender: FDA-Public Use
  Company Number: 2005EU002751

PATIENT
  Age: 71 Year
  Sex: Female

DRUGS (1)
  1. PROTOPIC [Suspect]
     Indication: ORAL LICHEN PLANUS
     Dosage: 0.1 %, BID, TOPICAL
     Route: 061
     Dates: start: 20051004, end: 20051018

REACTIONS (1)
  - GINGIVAL HYPERTROPHY [None]
